FAERS Safety Report 7459095-3 (Version None)
Quarter: 2011Q2

REPORT INFORMATION
  Report Type: 
  Country: None (occurrence: None)
  Receive Date: 20110505
  Receipt Date: 20110427
  Transmission Date: 20111010
  Serious: No
  Sender: FDA-Public Use
  Company Number: US-BIOGENIDEC-2011BI015947

PATIENT
  Sex: Female

DRUGS (3)
  1. FLEXERIL [Concomitant]
     Indication: MUSCLE SPASMS
  2. TYSABRI [Suspect]
     Indication: MULTIPLE SCLEROSIS
     Route: 042
     Dates: start: 20101112, end: 20110204
  3. ULTRAM [Concomitant]
     Indication: PAIN

REACTIONS (4)
  - MULTIPLE SCLEROSIS RELAPSE [None]
  - POST-TRAUMATIC HEADACHE [None]
  - ROAD TRAFFIC ACCIDENT [None]
  - PRURITUS [None]
